FAERS Safety Report 23774309 (Version 1)
Quarter: 2024Q2

REPORT INFORMATION
  Report Type: Spontaneous
  Country: CA (occurrence: CA)
  Receive Date: 20240423
  Receipt Date: 20240423
  Transmission Date: 20240715
  Serious: Yes (Other)
  Sender: FDA-Public Use
  Company Number: CA-TEVA-VS-3187596

PATIENT
  Age: 5 Decade
  Sex: Male

DRUGS (1)
  1. METHOTREXATE [Suspect]
     Active Substance: METHOTREXATE
     Indication: Corneal epithelial downgrowth
     Route: 065

REACTIONS (4)
  - Retinal pigment epitheliopathy [Unknown]
  - Atrophy of globe [Unknown]
  - Infective keratitis [Unknown]
  - Off label use [Unknown]
